FAERS Safety Report 4778667-8 (Version None)
Quarter: 2005Q3

REPORT INFORMATION
  Report Type: 
  Country: None (occurrence: None)
  Receive Date: 20050926
  Receipt Date: 20050430
  Transmission Date: 20060218
  Serious: Yes (Hospitalization)
  Sender: FDA-Public Use
  Company Number: 2005AP03147

PATIENT
  Age: 26857 Day
  Sex: Male

DRUGS (3)
  1. ZOLADEX [Suspect]
     Indication: PROSTATE CANCER
     Route: 058
     Dates: start: 20030323, end: 20030714
  2. FLIVAS [Concomitant]
     Route: 048
     Dates: start: 20030301
  3. KAMAG G [Concomitant]
     Route: 048
     Dates: start: 20030301

REACTIONS (5)
  - FALL [None]
  - HEAD INJURY [None]
  - INSOMNIA [None]
  - RESTLESS LEGS SYNDROME [None]
  - SLEEP APNOEA SYNDROME [None]
